FAERS Safety Report 5270120-0 (Version None)
Quarter: 2007Q1

REPORT INFORMATION
  Report Type: 
  Country: None (occurrence: None)
  Receive Date: 20070320
  Receipt Date: 20070308
  Transmission Date: 20070707
  Serious: Yes (Hospitalization, Other)
  Sender: FDA-Public Use
  Company Number: DE-GILEAD-2007-0011321

PATIENT
  Sex: Male
  Weight: 101 kg

DRUGS (6)
  1. TRUVADA [Suspect]
     Indication: HIV INFECTION
     Route: 048
     Dates: start: 20060215, end: 20060328
  2. SUSTIVA [Suspect]
     Route: 048
     Dates: start: 20060215, end: 20060328
  3. RETROVIR [Suspect]
     Route: 048
     Dates: start: 20060215, end: 20060328
  4. ATORVASTATIN CALCIUM [Concomitant]
     Dates: start: 20040901, end: 20060328
  5. PANTOZOL [Concomitant]
     Dates: start: 20050101, end: 20060625
  6. MULTI-VITAMIN [Concomitant]
     Dates: start: 20000201, end: 20060328

REACTIONS (2)
  - PANCREATITIS ACUTE [None]
  - SUPERINFECTION [None]
